FAERS Safety Report 21603830 (Version 1)
Quarter: 2022Q4

REPORT INFORMATION
  Report Type: Other
  Country: None (occurrence: US)
  Receive Date: 20221116
  Receipt Date: 20221116
  Transmission Date: 20230112
  Serious: Yes (Death, Disabling)
  Sender: FDA-Public Use
  Company Number: US-Nostrum Laboratories, Inc.-2134956

PATIENT
  Sex: Male

DRUGS (1)
  1. RANITIDINE [Suspect]
     Active Substance: RANITIDINE
     Indication: Gastrooesophageal reflux disease
     Route: 048

REACTIONS (1)
  - Oesophageal carcinoma [Fatal]
